FAERS Safety Report 24158267 (Version 1)
Quarter: 2024Q3

REPORT INFORMATION
  Report Type: Spontaneous
  Country: MY (occurrence: MY)
  Receive Date: 20240731
  Receipt Date: 20240731
  Transmission Date: 20241016
  Serious: Yes (Hospitalization, Other)
  Sender: AMERICAN REGENT
  Company Number: MY-AMERICAN REGENT INC-2024002876

PATIENT
  Age: 37 Year
  Sex: Female

DRUGS (16)
  1. VENOFER [Suspect]
     Active Substance: IRON SUCROSE
     Indication: Nephrogenic anaemia
     Dosage: 100 MILLIGRAM, 1 IN 2 WK
     Route: 042
  2. VENOFER [Suspect]
     Active Substance: IRON SUCROSE
     Dosage: UNK, 1 IN 2 WK
     Route: 042
  3. FOLIC ACID\IRON POLYMALTOSE [Suspect]
     Active Substance: FOLIC ACID\IRON POLYMALTOSE
     Indication: Nephrogenic anaemia
     Dosage: UNK, DAILY
     Route: 048
  4. MIRCERA [Suspect]
     Active Substance: METHOXY POLYETHYLENE GLYCOL-EPOETIN BETA
     Indication: Nephrogenic anaemia
     Dosage: 150 MICROGRAM, 1 IN 1 M
     Route: 058
  5. EPOETIN BETA [Suspect]
     Active Substance: ERYTHROPOIETIN
     Indication: Nephrogenic anaemia
     Dosage: 6000 UNITS (1 IN 1 WK)
     Route: 065
  6. DEXAMETHASONE [Suspect]
     Active Substance: DEXAMETHASONE
     Indication: Product used for unknown indication
     Dosage: 12 MILLIGRAM (2 DOSES AT 30 WEEKS OF GESTATION)
     Route: 030
     Dates: start: 20240712
  7. NIFEDIPINE [Suspect]
     Active Substance: NIFEDIPINE
     Indication: Hypertension
     Dosage: 10 MG, 3 TIMES DAILY (30.303 MILLIGRAM) (10 MG,1 IN 0.33 D)
     Route: 065
  8. MAGNESIUM SULFATE [Suspect]
     Active Substance: MAGNESIUM SULFATE\MAGNESIUM SULFATE HEPTAHYDRATE
     Indication: Nervous system disorder prophylaxis
     Dosage: UNK
     Route: 042
  9. MAGNESIUM SULFATE [Suspect]
     Active Substance: MAGNESIUM SULFATE\MAGNESIUM SULFATE HEPTAHYDRATE
     Indication: Prophylaxis
  10. PRAZOSIN [Suspect]
     Active Substance: PRAZOSIN
     Indication: Hypertension
     Dosage: 2 MILLIGRAM (1 MG,1 IN 0.5 D)
     Route: 065
  11. TELMISARTAN [Suspect]
     Active Substance: TELMISARTAN
     Indication: Hypertension
     Dosage: 160 MILLIGRAM, QD
     Route: 065
  12. FELODIPINE [Suspect]
     Active Substance: FELODIPINE
     Indication: Hypertension
     Dosage: 20 MILLIGRAM, 1 IN 0.5 D (TWICE PER DAY)
     Route: 065
  13. SIMVASTATIN [Suspect]
     Active Substance: SIMVASTATIN
     Indication: Hypertension
     Dosage: 20 MILLIGRAM, QD
     Route: 065
  14. METHYLDOPA [Suspect]
     Active Substance: METHYLDOPA
     Indication: Hypertension
     Dosage: 500 MILLIGRAM, 3 IN 1 D (ONCE IN 0.33 DAYS)
     Route: 065
  15. METHYLDOPA [Suspect]
     Active Substance: METHYLDOPA
     Dosage: 1000 MILLIGRAM, 3 IN 1 D (INCREASED)
     Route: 065
  16. CALCIUM CARBONATE [Suspect]
     Active Substance: CALCIUM CARBONATE
     Indication: Hypertension
     Dosage: 1 GRAM, 3 IN 1 D (ONCE IN 0.33 DAYS)
     Route: 048

REACTIONS (8)
  - Hypertensive crisis [Unknown]
  - Pre-eclampsia [Unknown]
  - Thrombocytopenia [Unknown]
  - Gestational diabetes [Recovering/Resolving]
  - Premature delivery [Unknown]
  - Hypertension [Unknown]
  - Maternal exposure during pregnancy [Unknown]
  - Maternal exposure before pregnancy [Unknown]
